FAERS Safety Report 5370401-6 (Version None)
Quarter: 2007Q2

REPORT INFORMATION
  Report Type: 
  Country: None (occurrence: None)
  Receive Date: 20070625
  Receipt Date: 20070625
  Transmission Date: 20071010
  Serious: Yes (Hospitalization)
  Sender: FDA-Public Use
  Company Number: None

PATIENT
  Sex: Male
  Weight: 84.4 kg

DRUGS (3)
  1. SIMVASTATIN [Suspect]
     Indication: HYPERCHOLESTEROLAEMIA
     Dosage: 80MG QHS PO
     Route: 048
     Dates: start: 20050101, end: 20060901
  2. AMIODARONE HCL [Suspect]
     Indication: ARRHYTHMIA
     Dosage: 200MG BID PO
     Route: 048
     Dates: start: 20060101, end: 20060901
  3. AMIODARONE HCL [Suspect]
     Indication: HEART RATE ABNORMAL
     Dosage: 200MG BID PO
     Route: 048
     Dates: start: 20060101, end: 20060901

REACTIONS (2)
  - MUSCULAR WEAKNESS [None]
  - RENAL FAILURE ACUTE [None]
